FAERS Safety Report 5722832-X (Version None)
Quarter: 2008Q2

REPORT INFORMATION
  Report Type: 
  Country: None (occurrence: None)
  Receive Date: 20080429
  Receipt Date: 20080111
  Transmission Date: 20081010
  Serious: Yes (Hospitalization)
  Sender: FDA-Public Use
  Company Number: US-ASTRAZENECA-2008UW00898

PATIENT
  Age: 67 Year
  Sex: Female
  Weight: 78.9 kg

DRUGS (5)
  1. NEXIUM [Suspect]
     Indication: GASTROOESOPHAGEAL REFLUX DISEASE
     Route: 048
     Dates: start: 20070101
  2. NEXIUM [Suspect]
     Route: 048
     Dates: start: 20070101
  3. ZYRTEC [Concomitant]
  4. VASOTEC [Concomitant]
  5. TRAZODONE HCL [Concomitant]

REACTIONS (1)
  - CHEST PAIN [None]
